FAERS Safety Report 4747882-1 (Version None)
Quarter: 2005Q3

REPORT INFORMATION
  Report Type: 
  Country: None (occurrence: None)
  Receive Date: 20050816
  Receipt Date: 20050804
  Transmission Date: 20060218
  Serious: Yes (Other)
  Sender: FDA-Public Use
  Company Number: HQWYE349824MAR05

PATIENT
  Age: 59 Year
  Sex: Male

DRUGS (4)
  1. CORDARONE [Suspect]
     Indication: ARRHYTHMIA
     Dosage: 200 MG 1X PER 1 DAY ORAL
     Route: 048
     Dates: start: 20000111, end: 20000501
  2. DIGOXIN [Concomitant]
  3. WARFARIN (WARFARIN) [Concomitant]
  4. ATENOLOL [Concomitant]

REACTIONS (8)
  - BURNING SENSATION [None]
  - CHEST WALL PAIN [None]
  - EXFOLIATIVE RASH [None]
  - NEUROPATHY [None]
  - PAIN [None]
  - PHOTOSENSITIVITY REACTION [None]
  - PRURITUS [None]
  - SHOULDER PAIN [None]
